FAERS Safety Report 5385102-8 (Version None)
Quarter: 2007Q3

REPORT INFORMATION
  Report Type: 
  Country: None (occurrence: None)
  Receive Date: 20070712
  Receipt Date: 20070702
  Transmission Date: 20080115
  Serious: Yes (Hospitalization)
  Sender: FDA-Public Use
  Company Number: US-ASTRAZENECA-2007UW15783

PATIENT
  Age: 528 Month
  Sex: Male
  Weight: 100 kg

DRUGS (5)
  1. SEROQUEL [Suspect]
     Indication: BIPOLAR DISORDER
     Route: 048
     Dates: start: 20001211
  2. SEROQUEL [Suspect]
     Indication: DEPRESSION
     Route: 048
     Dates: start: 20001211
  3. TRAZODONE HCL [Concomitant]
  4. LAMICTAL [Concomitant]
  5. TRILEPTAL [Concomitant]

REACTIONS (2)
  - RESPIRATORY DISORDER [None]
  - TYPE 2 DIABETES MELLITUS [None]
